FAERS Safety Report 15944151 (Version 1)
Quarter: 2019Q1

REPORT INFORMATION
  Report Type: Report from Study
  Country: US (occurrence: US)
  Receive Date: 20190211
  Receipt Date: 20190211
  Transmission Date: 20190417
  Serious: Yes (Death, Other)
  Sender: FDA-Public Use
  Company Number: US-SUN PHARMACEUTICAL INDUSTRIES LTD-2018US-188851

PATIENT
  Sex: Male

DRUGS (1)
  1. CLOZAPINE. [Suspect]
     Active Substance: CLOZAPINE
     Indication: SCHIZOPHRENIA
     Dosage: 100 MG QAM, 500 MG QHS, BID
     Route: 048

REACTIONS (5)
  - Condition aggravated [Unknown]
  - Therapy cessation [Unknown]
  - Cardiomegaly [Fatal]
  - Left ventricular hypertrophy [Fatal]
  - Hypertensive cerebrovascular disease [Fatal]

NARRATIVE: CASE EVENT DATE: 2018
